FAERS Safety Report 7417405-7 (Version None)
Quarter: 2011Q2

REPORT INFORMATION
  Report Type: 
  Country: None (occurrence: None)
  Receive Date: 20110415
  Receipt Date: 20110407
  Transmission Date: 20111010
  Serious: Yes (Death, Other)
  Sender: FDA-Public Use
  Company Number: JP-PFIZER INC-2011063200

PATIENT
  Age: 39 Year
  Sex: Male

DRUGS (8)
  1. PREDNISOLONE [Suspect]
     Indication: ACUTE MYELOID LEUKAEMIA
  2. MERCAPTOPURINE [Suspect]
     Indication: ACUTE MYELOID LEUKAEMIA
  3. ACLARUBICIN [Suspect]
     Indication: ACUTE MYELOID LEUKAEMIA
  4. DAUNORUBICIN HCL [Suspect]
     Indication: ACUTE MYELOID LEUKAEMIA
  5. VINCRISTINE SULFATE [Suspect]
     Indication: ACUTE MYELOID LEUKAEMIA
  6. CYCLOPHOSPHAMIDE [Suspect]
     Indication: ACUTE MYELOID LEUKAEMIA
  7. DOXORUBICIN HCL [Suspect]
     Indication: ACUTE MYELOID LEUKAEMIA
  8. CYTOSINE ARABINOSIDE [Suspect]
     Indication: ACUTE MYELOID LEUKAEMIA

REACTIONS (3)
  - HAEMATURIA [None]
  - MYELODYSPLASTIC SYNDROME TRANSFORMATION [None]
  - CEREBELLAR HAEMORRHAGE [None]
